FAERS Safety Report 9018368 (Version 1)
Quarter: 2013Q1

REPORT INFORMATION
  Report Type: Spontaneous
  Country: US (occurrence: None)
  Receive Date: 20130111
  Receipt Date: 20130111
  Transmission Date: 20140127
  Serious: Yes (Disabling, Other)
  Sender: FDA-Public Use
  Company Number: None

PATIENT
  Age: 50 Year
  Sex: Female
  Weight: 131.54 kg

DRUGS (2)
  1. LEVOFLOXACIN [Suspect]
     Indication: SINUSITIS
     Dosage: 1 PILL
     Route: 048
     Dates: start: 20121213, end: 20121222
  2. LEVOFLOXACIN [Suspect]
     Indication: BRONCHITIS
     Dosage: 1 PILL
     Route: 048
     Dates: start: 20121213, end: 20121222

REACTIONS (15)
  - Local swelling [None]
  - Joint swelling [None]
  - Fall [None]
  - Foot fracture [None]
  - Arthralgia [None]
  - Tendon pain [None]
  - Drug ineffective [None]
  - Hypoaesthesia [None]
  - Arthralgia [None]
  - Musculoskeletal pain [None]
  - Pain [None]
  - Tendon rupture [None]
  - Joint swelling [None]
  - Joint swelling [None]
  - Malaise [None]
